FAERS Safety Report 14385728 (Version 1)
Quarter: 2018Q1

REPORT INFORMATION
  Report Type: Spontaneous
  Country: US (occurrence: US)
  Receive Date: 20180115
  Receipt Date: 20180115
  Transmission Date: 20180509
  Serious: Yes (Life-Threatening, Hospitalization)
  Sender: FDA-Public Use
  Company Number: US-SA-2017SA034920

PATIENT
  Age: 54 Year
  Sex: Female

DRUGS (20)
  1. TAXOTERE [Suspect]
     Active Substance: DOCETAXEL
     Indication: HER-2 POSITIVE BREAST CANCER
     Dosage: LOADING DOSE; START TIME OF INFUSION: 14:50 AND STOP TIME OF INFUSION: 16:20
     Route: 042
     Dates: start: 20141022, end: 20141022
  2. TRASTUZUMAB. [Suspect]
     Active Substance: TRASTUZUMAB
     Indication: HER-2 POSITIVE BREAST CANCER
     Route: 042
     Dates: start: 20141110, end: 20141110
  3. GABAPENTIN. [Concomitant]
     Active Substance: GABAPENTIN
     Route: 065
  4. OMEPRAZOLE. [Concomitant]
     Active Substance: OMEPRAZOLE
     Route: 065
     Dates: start: 200906
  5. SIMVASTATIN. [Concomitant]
     Active Substance: SIMVASTATIN
     Route: 065
     Dates: start: 200906
  6. ALPRAZOLAM. [Concomitant]
     Active Substance: ALPRAZOLAM
     Route: 065
     Dates: start: 20140929
  7. BISACODYL. [Concomitant]
     Active Substance: BISACODYL
     Indication: PROPHYLAXIS
     Route: 065
     Dates: start: 20141125, end: 20141126
  8. PERTUZUMAB. [Suspect]
     Active Substance: PERTUZUMAB
     Indication: HER-2 POSITIVE BREAST CANCER
     Route: 042
     Dates: start: 20141110, end: 20141110
  9. CARBOPLATIN. [Suspect]
     Active Substance: CARBOPLATIN
     Indication: HER-2 POSITIVE BREAST CANCER
     Route: 042
     Dates: start: 20141022, end: 20141022
  10. LISINOPRIL. [Concomitant]
     Active Substance: LISINOPRIL
     Route: 065
     Dates: start: 200906
  11. PANTOPRAZOLE [Concomitant]
     Active Substance: PANTOPRAZOLE
     Indication: PROPHYLAXIS
     Route: 065
     Dates: start: 20141125
  12. LOMOTIL [Concomitant]
     Active Substance: ATROPINE SULFATE\DIPHENOXYLATE HYDROCHLORIDE
     Route: 065
     Dates: start: 20141028
  13. GLIPIZIDE. [Concomitant]
     Active Substance: GLIPIZIDE
     Route: 065
     Dates: start: 200906
  14. PERTUZUMAB. [Suspect]
     Active Substance: PERTUZUMAB
     Indication: HER-2 POSITIVE BREAST CANCER
     Route: 042
     Dates: start: 20141022, end: 20141022
  15. CARBOPLATIN. [Suspect]
     Active Substance: CARBOPLATIN
     Indication: HER-2 POSITIVE BREAST CANCER
     Route: 042
     Dates: start: 20141110, end: 20141110
  16. ACETAMINOPHEN. [Concomitant]
     Active Substance: ACETAMINOPHEN
     Indication: PROPHYLAXIS
     Route: 065
     Dates: start: 20141125, end: 20141126
  17. IMODIUM [Concomitant]
     Active Substance: LOPERAMIDE HYDROCHLORIDE
     Route: 065
     Dates: start: 20141028
  18. TAXOTERE [Suspect]
     Active Substance: DOCETAXEL
     Indication: HER-2 POSITIVE BREAST CANCER
     Dosage: MAINTENANCE DOSE; START TIME OF INFUSION: 14:30
     Route: 042
     Dates: start: 20141110, end: 20141110
  19. TRASTUZUMAB. [Suspect]
     Active Substance: TRASTUZUMAB
     Indication: HER-2 POSITIVE BREAST CANCER
     Route: 042
     Dates: start: 20141022, end: 20141022
  20. METFORMIN [Concomitant]
     Active Substance: METFORMIN HYDROCHLORIDE
     Route: 065
     Dates: start: 200906

REACTIONS (2)
  - Sepsis [Recovered/Resolved]
  - Subcutaneous abscess [Recovering/Resolving]

NARRATIVE: CASE EVENT DATE: 20141118
